FAERS Safety Report 15615854 (Version 1)
Quarter: 2018Q4

REPORT INFORMATION
  Report Type: Spontaneous
  Country: US (occurrence: US)
  Receive Date: 20181114
  Receipt Date: 20181114
  Transmission Date: 20190205
  Serious: No
  Sender: FDA-Public Use
  Company Number: US-BAYER-2018-210420

PATIENT
  Age: 84 Year
  Sex: Female
  Weight: 91 kg

DRUGS (2)
  1. MIRALAX [Suspect]
     Active Substance: POLYETHYLENE GLYCOL 3350
     Indication: COLONOSCOPY
     Dosage: UNK
     Route: 048
  2. MIRALAX [Suspect]
     Active Substance: POLYETHYLENE GLYCOL 3350
     Indication: COLONOSCOPY
     Dosage: UNK UNK, BID
     Route: 048
     Dates: start: 20181112, end: 20181112

REACTIONS (3)
  - Product use in unapproved indication [None]
  - Off label use [Unknown]
  - Product use in unapproved indication [None]

NARRATIVE: CASE EVENT DATE: 20181112
